FAERS Safety Report 9416531 (Version 3)
Quarter: 2013Q3

REPORT INFORMATION
  Report Type: Spontaneous
  Country: CO (occurrence: CO)
  Receive Date: 20130724
  Receipt Date: 20130828
  Transmission Date: 20140515
  Serious: Yes (Other)
  Sender: FDA-Public Use
  Company Number: CO-JNJFOC-20130710644

PATIENT
  Age: 70 Year
  Sex: Female
  Weight: 64 kg

DRUGS (5)
  1. REMICADE [Suspect]
     Indication: RHEUMATOID ARTHRITIS
     Dosage: 47 DOSES TILL THE DAY OF REPORT
     Route: 042
     Dates: start: 20130705
  2. REMICADE [Suspect]
     Indication: RHEUMATOID ARTHRITIS
     Route: 042
     Dates: start: 20130503
  3. HYDROXYCHLOROQUINE [Concomitant]
     Indication: ARTHRITIS
     Route: 065
  4. LEVOTHYROXINE [Concomitant]
     Indication: HYPOTHYROIDISM
     Route: 065
  5. FLANTADIN [Concomitant]
     Indication: ARTHRITIS
     Route: 065

REACTIONS (1)
  - Herpes virus infection [Recovered/Resolved]
